FAERS Safety Report 8234845-7 (Version None)
Quarter: 2012Q1

REPORT INFORMATION
  Report Type: 
  Country: None (occurrence: None)
  Receive Date: 20120321
  Receipt Date: 20120228
  Transmission Date: 20120608
  Serious: Yes (Hospitalization)
  Sender: FDA-Public Use
  Company Number: DSA_55422_2012

PATIENT
  Age: 55 Year
  Sex: Male

DRUGS (5)
  1. STAMARIL (YELLOW FEVER VACCINE) [Suspect]
     Indication: PRODUCT USED FOR UNKNOWN INDICATION
     Dosage: (DF ONE TIME PERCUTANEOUS)
     Dates: start: 20110910, end: 20110910
  2. IBUPROFEN [Suspect]
     Indication: PRODUCT USED FOR UNKNOWN INDICATION
     Dosage: (DF ONE TIME ORAL)
     Route: 048
     Dates: start: 20110924, end: 20110924
  3. DIALGIREX (DEXTROPROPOXYPHENE + PARACETAMOL) [Suspect]
     Indication: PRODUCT USED FOR UNKNOWN INDICATION
     Dosage: (DF ONE TIME ORAL)
     Route: 048
     Dates: start: 20110924, end: 20110924
  4. FLAGYL [Suspect]
     Indication: DIARRHOEA
     Dosage: (DF ORAL)
     Route: 048
     Dates: start: 20110919, end: 20110924
  5. TIORFAN (ACETORPHAN) [Suspect]
     Indication: DIARRHOEA
     Dosage: (DF ORAL)
     Route: 048
     Dates: start: 20110919, end: 20110924

REACTIONS (1)
  - URTICARIA [None]
